FAERS Safety Report 7812765-7 (Version None)
Quarter: 2011Q4

REPORT INFORMATION
  Report Type: 
  Country: None (occurrence: None)
  Receive Date: 20111013
  Receipt Date: 20111005
  Transmission Date: 20120403
  Serious: Yes (Death, Other)
  Sender: FDA-Public Use
  Company Number: US-PURDUE-USA-2011-0075751

PATIENT
  Age: 23 Year
  Sex: Male

DRUGS (2)
  1. PERCOCET [Suspect]
     Indication: DRUG ABUSE
  2. OXYCONTIN [Suspect]
     Indication: DRUG ABUSE

REACTIONS (2)
  - GUN SHOT WOUND [None]
  - DRUG ABUSE [None]
